FAERS Safety Report 8550765 (Version 2)
Quarter: 2012Q4

REPORT INFORMATION
  Report Type: 
  Country: GB (occurrence: GB)
  Receive Date: 20120508
  Receipt Date: 20121008
  Transmission Date: 20130627
  Serious: Yes (Death)
  Sender: FDA-Public Use
  Company Number: GB-UCBSA-056467

PATIENT
  Age: 20 Year
  Sex: Male

DRUGS (1)
  1. VIMPAT [Suspect]
     Indication: EPILEPSY
     Route: 048
     Dates: start: 2011, end: 20120430

REACTIONS (1)
  - Death [Fatal]
